FAERS Safety Report 23028691 (Version 1)
Quarter: 2023Q4

REPORT INFORMATION
  Report Type: Spontaneous
  Country: US (occurrence: US)
  Receive Date: 20231004
  Receipt Date: 20231004
  Transmission Date: 20240109
  Serious: Yes (Hospitalization)
  Sender: FDA-Public Use
  Company Number: US-TEVA-2023-US-2930609

PATIENT
  Sex: Male
  Weight: 0.88 kg

DRUGS (7)
  1. AMIKACIN [Suspect]
     Active Substance: AMIKACIN
     Indication: Antibiotic prophylaxis
     Dosage: FROM DAY OF LIFE (DOL) 3
     Route: 065
  2. HYDROCORTISONE SODIUM SUCCINATE [Suspect]
     Active Substance: HYDROCORTISONE SODIUM SUCCINATE
     Indication: Antibiotic prophylaxis
     Dosage: 3 MG/KG DAILY; FROM DAY OF LIFE (DOL) 3
     Route: 065
  3. AMPICILLIN [Suspect]
     Active Substance: AMPICILLIN
     Indication: Antibiotic prophylaxis
     Dosage: 300 MG/KG DAILY; FROM DAY OF LIFE (DOL) 3
     Route: 065
  4. NAFCILLIN [Suspect]
     Active Substance: NAFCILLIN SODIUM
     Indication: Evidence based treatment
     Dosage: 50 MG/KG DAILY;
     Route: 065
  5. AMPHOTERICIN B [Concomitant]
     Active Substance: AMPHOTERICIN B
     Indication: Antibiotic prophylaxis
     Dosage: 1 MG/KG DAILY; FROM DAY OF LIFE (DOL) 3
     Route: 065
  6. AMPHOTERICIN B [Concomitant]
     Active Substance: AMPHOTERICIN B
     Route: 065
  7. MICAFUNGIN [Concomitant]
     Active Substance: MICAFUNGIN SODIUM
     Indication: Evidence based treatment
     Dosage: 10 MG/KG DAILY;
     Route: 065

REACTIONS (2)
  - Aspergillus infection [Recovering/Resolving]
  - Wound necrosis [Recovering/Resolving]
